FAERS Safety Report 11995888 (Version 2)
Quarter: 2016Q1

REPORT INFORMATION
  Report Type: Report from Study
  Country: SE (occurrence: SE)
  Receive Date: 20160203
  Receipt Date: 20160212
  Transmission Date: 20160526
  Serious: Yes (Hospitalization, Other)
  Sender: FDA-Public Use
  Company Number: PHHY2016SE011734

PATIENT
  Sex: Male

DRUGS (1)
  1. EXJADE [Suspect]
     Active Substance: DEFERASIROX
     Indication: MYELODYSPLASTIC SYNDROME
     Dosage: 1500 MG, QD
     Route: 048
     Dates: start: 20151117

REACTIONS (6)
  - Malaise [Unknown]
  - Neutrophilia [Unknown]
  - C-reactive protein abnormal [Unknown]
  - Platelet count decreased [Unknown]
  - General physical health deterioration [Unknown]
  - Haemoglobin decreased [Recovering/Resolving]
